FAERS Safety Report 4932633-8 (Version None)
Quarter: 2006Q1

REPORT INFORMATION
  Report Type: 
  Country: None (occurrence: None)
  Receive Date: 20060228
  Receipt Date: 20060221
  Transmission Date: 20060701
  Serious: Yes (Other)
  Sender: FDA-Public Use
  Company Number: HQWYE928422FEB06

PATIENT
  Age: 22 Year
  Sex: Female

DRUGS (1)
  1. ETODOLAC [Suspect]
     Dates: start: 20040701, end: 20040701

REACTIONS (1)
  - ANAPHYLACTOID SHOCK [None]
